FAERS Safety Report 25183635 (Version 1)
Quarter: 2025Q2

REPORT INFORMATION
  Report Type: Other
  Country: US (occurrence: US)
  Receive Date: 20250410
  Receipt Date: 20250410
  Transmission Date: 20250716
  Serious: Yes (Death, Other)
  Sender: ALVOGEN
  Company Number: US-ALVOGEN-2025096967

PATIENT
  Age: 40 Year
  Sex: Male

DRUGS (5)
  1. CITALOPRAM [Suspect]
     Active Substance: CITALOPRAM
     Indication: Drug abuse
     Route: 065
  2. FENTANYL [Suspect]
     Active Substance: FENTANYL
     Indication: Drug abuse
     Route: 065
  3. COCAINE [Suspect]
     Active Substance: COCAINE
     Indication: Drug abuse
     Route: 065
  4. TOPIRAMATE [Suspect]
     Active Substance: TOPIRAMATE
     Indication: Drug abuse
     Route: 065
  5. OLANZAPINE [Suspect]
     Active Substance: OLANZAPINE
     Indication: Drug abuse
     Route: 065

REACTIONS (4)
  - Drug abuse [Fatal]
  - Respiratory arrest [Unknown]
  - Cardiac arrest [Unknown]
  - Prescription drug used without a prescription [Unknown]
